FAERS Safety Report 11741625 (Version 1)
Quarter: 2015Q4

REPORT INFORMATION
  Report Type: Spontaneous
  Country: US (occurrence: US)
  Receive Date: 20151116
  Receipt Date: 20151116
  Transmission Date: 20160304
  Serious: No
  Sender: FDA-Public Use
  Company Number: US-SUN PHARMACEUTICAL INDUSTRIES LTD-2015SUN01013

PATIENT

DRUGS (1)
  1. PHENTERMINE HYDROCHLORIDE TABLETS, USP 37.5 MG [Suspect]
     Active Substance: PHENTERMINE HYDROCHLORIDE
     Indication: WEIGHT DECREASED
     Route: 065

REACTIONS (1)
  - Drug ineffective [Unknown]
